FAERS Safety Report 7735559-X (Version None)
Quarter: 2011Q3

REPORT INFORMATION
  Report Type: 
  Country: None (occurrence: None)
  Receive Date: 20110907
  Receipt Date: 20110823
  Transmission Date: 20111222
  Serious: Yes (Hospitalization, Other)
  Sender: FDA-Public Use
  Company Number: TR-WATSON-2011-14000

PATIENT
  Sex: Male

DRUGS (1)
  1. VALPROATE SODIUM [Suspect]
     Indication: COMPLEX PARTIAL SEIZURES
     Dosage: 1000 MG, DAILY
     Route: 064

REACTIONS (7)
  - HYPOTHYROIDISM [None]
  - MATERNAL EXPOSURE DURING PREGNANCY [None]
  - MULTIPLE CONGENITAL ABNORMALITIES [None]
  - CONGENITAL ANOMALY [None]
  - RESPIRATORY DISORDER NEONATAL [None]
  - CONGENITAL HAND MALFORMATION [None]
  - HEART DISEASE CONGENITAL [None]
